FAERS Safety Report 10373034 (Version 2)
Quarter: 2014Q3

REPORT INFORMATION
  Report Type: Spontaneous
  Country: US (occurrence: US)
  Receive Date: 20140808
  Receipt Date: 20140808
  Transmission Date: 20150326
  Serious: Yes (Other)
  Sender: FDA-Public Use
  Company Number: US-BRISTOL-MYERS SQUIBB COMPANY-19930775

PATIENT
  Age: 63 Year
  Sex: Female

DRUGS (4)
  1. LOZOL [Concomitant]
     Active Substance: INDAPAMIDE
  2. ALLOPURINOL. [Concomitant]
     Active Substance: ALLOPURINOL
  3. KLOR-CON [Concomitant]
     Active Substance: POTASSIUM CHLORIDE
  4. SPRYCEL [Suspect]
     Active Substance: DASATINIB
     Indication: CHRONIC MYELOID LEUKAEMIA
     Route: 048
     Dates: start: 201205, end: 201303

REACTIONS (4)
  - Chest discomfort [Unknown]
  - Headache [Unknown]
  - Visual impairment [Unknown]
  - Malignant neoplasm progression [Unknown]
